FAERS Safety Report 4802093-6 (Version None)
Quarter: 2005Q4

REPORT INFORMATION
  Report Type: 
  Country: None (occurrence: None)
  Receive Date: 20051012
  Receipt Date: 20050927
  Transmission Date: 20060501
  Serious: Yes (Hospitalization)
  Sender: FDA-Public Use
  Company Number: OMPQ-PR-0509S-1319

PATIENT
  Age: 30 Year
  Sex: Female

DRUGS (1)
  1. OMNIPAQUE 140 [Suspect]
     Dosage: 125 ML, SINGLE DOSE, I.V.
     Route: 042
     Dates: start: 20050921, end: 20050921

REACTIONS (4)
  - BLOOD THYROID STIMULATING HORMONE INCREASED [None]
  - CHILLS [None]
  - DEHYDRATION [None]
  - SWELLING FACE [None]
